FAERS Safety Report 7911126-X (Version None)
Quarter: 2011Q4

REPORT INFORMATION
  Report Type: 
  Country: None (occurrence: None)
  Receive Date: 20111109
  Receipt Date: 20111028
  Transmission Date: 20120403
  Serious: Yes (Life-Threatening)
  Sender: FDA-Public Use
  Company Number: GER/GER/11/0021815

PATIENT
  Age: 73 Year
  Sex: Female
  Weight: 87 kg

DRUGS (5)
  1. SIMVASTATIN [Concomitant]
  2. ASPIRIN [Concomitant]
  3. CLOPIDOGREL [Suspect]
     Indication: ACUTE MYOCARDIAL INFARCTION
     Dosage: 1 DOSAGE FORMS, 1 IN 1 D, ORAL
     Route: 048
     Dates: start: 20110402, end: 20111024
  4. ALLOPURINOL [Concomitant]
  5. PANTOPRAZOL BETA (PANTOPRAZOLE SODIUM SESQUIHYDRATE) [Concomitant]

REACTIONS (4)
  - PETECHIAE [None]
  - MELAENA [None]
  - THROMBOCYTOPENIA [None]
  - GASTRIC HAEMORRHAGE [None]
